FAERS Safety Report 12214183 (Version 1)
Quarter: 2016Q1

REPORT INFORMATION
  Report Type: Spontaneous
  Country: US (occurrence: US)
  Receive Date: 20160328
  Receipt Date: 20160328
  Transmission Date: 20160526
  Serious: No
  Sender: FDA-Public Use
  Company Number: US-ASTRAZENECA-2016SE20093

PATIENT
  Sex: Female

DRUGS (1)
  1. BYDUREON [Suspect]
     Active Substance: EXENATIDE
     Indication: HYPERGLYCAEMIA
     Route: 051

REACTIONS (3)
  - Chills [Unknown]
  - Fatigue [Unknown]
  - Abdominal discomfort [Unknown]
